FAERS Safety Report 21556113 (Version 3)
Quarter: 2022Q4

REPORT INFORMATION
  Report Type: Spontaneous
  Country: IT (occurrence: IT)
  Receive Date: 20221104
  Receipt Date: 20221117
  Transmission Date: 20230113
  Serious: Yes (Hospitalization, Other)
  Sender: FDA-Public Use
  Company Number: IT-INDIVIOR US-INDV-136288-2022

PATIENT
  Age: 30 Year
  Sex: Male

DRUGS (13)
  1. HALOPERIDOL [Suspect]
     Active Substance: HALOPERIDOL
     Indication: Psychotic symptom
     Dosage: 6 MILLIGRAM, QD
     Route: 048
  2. SUBOXONE [Suspect]
     Active Substance: BUPRENORPHINE HYDROCHLORIDE\NALOXONE HYDROCHLORIDE
     Indication: Product used for unknown indication
     Dosage: UNK
     Route: 065
  3. SUBOXONE [Suspect]
     Active Substance: BUPRENORPHINE HYDROCHLORIDE\NALOXONE HYDROCHLORIDE
     Indication: Drug abuse
  4. CHLORPROMAZINE [Suspect]
     Active Substance: CHLORPROMAZINE
     Indication: Psychotic symptom
     Route: 065
  5. ZUCLOPENTHIXOL [Suspect]
     Active Substance: ZUCLOPENTHIXOL
     Indication: Psychotic symptom
     Dosage: UNK
     Route: 065
  6. CLOZAPINE [Suspect]
     Active Substance: CLOZAPINE
     Indication: Psychotic symptom
     Dosage: 125 MILLIGRAM, QD
     Route: 065
  7. CLOZAPINE [Suspect]
     Active Substance: CLOZAPINE
     Dosage: 50 MILLIGRAM, QD
     Route: 065
  8. AMISULPRIDE [Suspect]
     Active Substance: AMISULPRIDE
     Indication: Psychotic symptom
     Dosage: 600 MILLIGRAM, QD
     Route: 065
  9. CLOTHIAPINE [Suspect]
     Active Substance: CLOTHIAPINE
     Indication: Psychotic symptom
     Route: 065
  10. CLOTHIAPINE [Suspect]
     Active Substance: CLOTHIAPINE
     Route: 065
  11. CLOTHIAPINE [Suspect]
     Active Substance: CLOTHIAPINE
     Route: 065
  12. CLONAZEPAM [Suspect]
     Active Substance: CLONAZEPAM
     Indication: Psychotic symptom
     Route: 065
  13. VALPROATE SODIUM [Suspect]
     Active Substance: VALPROATE SODIUM
     Indication: Psychotic symptom
     Route: 065

REACTIONS (11)
  - Intentional self-injury [Recovered/Resolved]
  - Suicide attempt [Recovered/Resolved]
  - Psychotic symptom [Recovered/Resolved]
  - Antisocial personality disorder [Unknown]
  - Borderline personality disorder [Unknown]
  - Drug withdrawal syndrome [Unknown]
  - Psychomotor hyperactivity [Recovered/Resolved]
  - Priapism [Recovered/Resolved]
  - Insomnia [Recovered/Resolved]
  - Restlessness [Recovered/Resolved]
  - Substance abuse [Recovered/Resolved]
